FAERS Safety Report 14008260 (Version 1)
Quarter: 2017Q3

REPORT INFORMATION
  Report Type: Spontaneous
  Country: US (occurrence: None)
  Receive Date: 20170925
  Receipt Date: 20170925
  Transmission Date: 20171128
  Serious: Yes (Other)
  Sender: FDA-Public Use
  Company Number: None

PATIENT
  Age: 50 Year
  Sex: Female
  Weight: 59.42 kg

DRUGS (5)
  1. REQUIP [Concomitant]
     Active Substance: ROPINIROLE HYDROCHLORIDE
  2. VIVITROL [Suspect]
     Active Substance: NALTREXONE
     Indication: ALCOHOLISM
     Route: 030
     Dates: start: 20170908
  3. FOLIC ACID. [Concomitant]
     Active Substance: FOLIC ACID
  4. THIAMINE. [Concomitant]
     Active Substance: THIAMINE
  5. CLARITIN [Concomitant]
     Active Substance: LORATADINE

REACTIONS (1)
  - Injection site mass [None]

NARRATIVE: CASE EVENT DATE: 20170908
